FAERS Safety Report 6432131-9 (Version None)
Quarter: 2009Q4

REPORT INFORMATION
  Report Type: 
  Country: None (occurrence: None)
  Receive Date: 20091105
  Receipt Date: 20091028
  Transmission Date: 20100525
  Serious: Yes (Disabling)
  Sender: FDA-Public Use
  Company Number: 2009JP006341

PATIENT
  Age: 57 Year
  Sex: Male

DRUGS (9)
  1. PROGRAF [Suspect]
     Indication: STEM CELL TRANSPLANT
     Dosage: 1.2 MG, /D, ORAL ; 1.5 MG, /D, ORAL
     Route: 048
     Dates: end: 20090915
  2. PROGRAF [Suspect]
     Indication: STEM CELL TRANSPLANT
     Dosage: 1.2 MG, /D, ORAL ; 1.5 MG, /D, ORAL
     Route: 048
     Dates: start: 20090916
  3. RABEPRAZOLE SODIUM [Concomitant]
  4. URSODIOL [Concomitant]
  5. ITRACONAZOLE [Concomitant]
  6. EXJADE [Concomitant]
  7. WARFARIN SODIUM [Concomitant]
  8. ASTRIC (ACICLOVIR) [Concomitant]
  9. SULFAMETHOXAZOLE AND TRIMETHOPRIM [Concomitant]

REACTIONS (2)
  - CHRONIC GRAFT VERSUS HOST DISEASE [None]
  - CORNEAL EROSION [None]
